FAERS Safety Report 17859208 (Version 1)
Quarter: 2020Q2

REPORT INFORMATION
  Report Type: Spontaneous
  Country: GB (occurrence: GB)
  Receive Date: 20200604
  Receipt Date: 20200604
  Transmission Date: 20200714
  Serious: Yes (Life-Threatening, Other)
  Sender: FDA-Public Use
  Company Number: GB-TEVA-2020-GB-1244021

PATIENT
  Age: 86 Year
  Sex: Male
  Weight: 58.5 kg

DRUGS (7)
  1. WARFARIN [Suspect]
     Active Substance: WARFARIN
     Indication: ATRIAL FIBRILLATION
     Dosage: 3MG DAILY BUT 2MG FRIDAY, SATURDAY AND SUNDAY.
     Route: 048
     Dates: start: 20150102
  2. CARBOCISTEINE [Concomitant]
     Active Substance: CARBOCYSTEINE
  3. TIOTROPIUM [Concomitant]
     Active Substance: TIOTROPIUM
  4. SYMBICORT [Concomitant]
     Active Substance: BUDESONIDE\FORMOTEROL FUMARATE DIHYDRATE
  5. DOXYCYCLINE. [Concomitant]
     Active Substance: DOXYCYCLINE
     Dates: start: 20200328
  6. SALBUTAMOL [Concomitant]
     Active Substance: ALBUTEROL
  7. ERYTHROMYCIN. [Concomitant]
     Active Substance: ERYTHROMYCIN
     Dates: start: 20200324

REACTIONS (1)
  - International normalised ratio increased [Recovered/Resolved]

NARRATIVE: CASE EVENT DATE: 20200330
